FAERS Safety Report 7127921-3 (Version None)
Quarter: 2010Q4

REPORT INFORMATION
  Report Type: 
  Country: None (occurrence: None)
  Receive Date: 20101112
  Receipt Date: 20101029
  Transmission Date: 20110411
  Serious: Yes (Death)
  Sender: FDA-Public Use
  Company Number: 011701

PATIENT
  Age: 5 Year
  Sex: Male

DRUGS (5)
  1. BUSULFEX [Suspect]
     Indication: STEM CELL TRANSPLANT
     Dosage: 0.8 MG/KG, Q6HR, UNKNOWN
  2. FLUDARABINE PHOSPHATE [Concomitant]
  3. CYCLOPHOSPHAMIDE [Concomitant]
  4. MYCOPHENOLATE MOFETIL [Concomitant]
  5. CYCLOSPORINE [Concomitant]

REACTIONS (2)
  - CHIMERISM [None]
  - TRANSPLANT REJECTION [None]
